FAERS Safety Report 7060743-0 (Version None)
Quarter: 2010Q4

REPORT INFORMATION
  Report Type: 
  Country: None (occurrence: None)
  Receive Date: 20101025
  Receipt Date: 20101018
  Transmission Date: 20110411
  Serious: Yes (Life-Threatening, Hospitalization)
  Sender: FDA-Public Use
  Company Number: NL-B.I. PHARMACEUTICALS,INC./RIDGEFIELD-2010-NL-00450NL

PATIENT

DRUGS (1)
  1. PRADAXA [Suspect]

REACTIONS (2)
  - CEREBROVASCULAR ACCIDENT [None]
  - THROMBOCYTOPENIA [None]
